FAERS Safety Report 16987481 (Version 3)
Quarter: 2020Q2

REPORT INFORMATION
  Report Type: Spontaneous
  Country: TW (occurrence: TW)
  Receive Date: 20191104
  Receipt Date: 20200422
  Transmission Date: 20200713
  Serious: Yes (Hospitalization, Other)
  Sender: FDA-Public Use
  Company Number: TW-ALEXION-A201916614

PATIENT
  Age: 20 Year
  Sex: Male
  Weight: 55 kg

DRUGS (7)
  1. ULTOMIRIS [Suspect]
     Active Substance: RAVULIZUMAB-CWVZ
     Indication: ATYPICAL HAEMOLYTIC URAEMIC SYNDROME
     Dosage: 3300 MG, SINGLE
     Route: 042
     Dates: start: 20170825, end: 20170825
  2. ULTOMIRIS [Suspect]
     Active Substance: RAVULIZUMAB-CWVZ
     Dosage: 3300 MG, SINGLE
     Route: 042
     Dates: start: 20180221, end: 20180221
  3. ULTOMIRIS [Suspect]
     Active Substance: RAVULIZUMAB-CWVZ
     Dosage: 3300 MG, SINGLE
     Route: 042
     Dates: start: 20180418, end: 20180418
  4. ULTOMIRIS [Suspect]
     Active Substance: RAVULIZUMAB-CWVZ
     Indication: OFF LABEL USE
     Dosage: 3300 MG, SINGLE
     Route: 042
     Dates: start: 20170911, end: 20170911
  5. ULTOMIRIS [Suspect]
     Active Substance: RAVULIZUMAB-CWVZ
     Dosage: 3300 MG, SINGLE
     Route: 042
     Dates: start: 20171228, end: 20171228
  6. ULTOMIRIS [Suspect]
     Active Substance: RAVULIZUMAB-CWVZ
     Dosage: 3300 MG, SINGLE
     Route: 042
     Dates: start: 20171103, end: 20171103
  7. ULTOMIRIS [Suspect]
     Active Substance: RAVULIZUMAB-CWVZ
     Dosage: 3300 MG, SINGLE
     Route: 042
     Dates: start: 20180612, end: 20180612

REACTIONS (10)
  - Blindness [Not Recovered/Not Resolved]
  - Neovascularisation [Unknown]
  - Tractional retinal detachment [Unknown]
  - Mydriasis [Unknown]
  - Swelling [Unknown]
  - Pupillary reflex impaired [Unknown]
  - Off label use [Unknown]
  - Retinal haemorrhage [Unknown]
  - Retinopathy proliferative [Not Recovered/Not Resolved]
  - Visual acuity reduced [Unknown]

NARRATIVE: CASE EVENT DATE: 20170922
